FAERS Safety Report 24814373 (Version 1)
Quarter: 2025Q1

REPORT INFORMATION
  Report Type: Report from Study
  Country: US (occurrence: US)
  Receive Date: 20250107
  Receipt Date: 20250107
  Transmission Date: 20250408
  Serious: Yes (Hospitalization, Other)
  Sender: BAYER HEALTHCARE PHARMACEUTICALS INC.
  Company Number: US-BAYER-2024A126484

PATIENT
  Age: 44 Year
  Sex: Female
  Weight: 124.26 kg

DRUGS (23)
  1. ADEMPAS [Suspect]
     Active Substance: RIOCIGUAT
     Indication: Pulmonary arterial hypertension
     Route: 048
     Dates: start: 20240507
  2. ADEMPAS [Suspect]
     Active Substance: RIOCIGUAT
     Indication: Pulmonary arterial hypertension
     Dosage: 1.5 MG, TID
     Route: 048
  3. ADEMPAS [Suspect]
     Active Substance: RIOCIGUAT
     Indication: Pulmonary arterial hypertension
     Dosage: 2 MG, TID
     Route: 048
  4. ADEMPAS [Suspect]
     Active Substance: RIOCIGUAT
     Indication: Pulmonary arterial hypertension
     Dosage: 2 MG, TID
     Route: 048
  5. KLOR-CON/EF [Concomitant]
     Active Substance: POTASSIUM BICARBONATE
  6. ACETAMINOPHEN [Concomitant]
     Active Substance: ACETAMINOPHEN
  7. PANTOPRAZOLE SODIUM [Concomitant]
     Active Substance: PANTOPRAZOLE SODIUM
  8. LOSARTAN POTASSIUM [Concomitant]
     Active Substance: LOSARTAN POTASSIUM
  9. B12 ACTIVE [Concomitant]
  10. FLUTICASONE PROPIONATE [Concomitant]
     Active Substance: FLUTICASONE PROPIONATE
  11. VITAMIN D3 [Concomitant]
     Active Substance: CHOLECALCIFEROL
  12. OXYGEN [Concomitant]
     Active Substance: OXYGEN
  13. CETIRIZINE HCL [Concomitant]
     Active Substance: CETIRIZINE HYDROCHLORIDE
  14. FUROSEMIDE [Concomitant]
     Active Substance: FUROSEMIDE
  15. METROGEL [Concomitant]
     Active Substance: METRONIDAZOLE
  16. WARFARIN SODIUM [Concomitant]
     Active Substance: WARFARIN SODIUM
  17. METFORMIN HYDROCHLORIDE [Concomitant]
     Active Substance: METFORMIN HYDROCHLORIDE
  18. SOTALOL [Concomitant]
     Active Substance: SOTALOL
  19. FERROUS SULFATE [Concomitant]
     Active Substance: FERROUS SULFATE
  20. ASPIRIN [Concomitant]
     Active Substance: ASPIRIN
  21. SENNA S [Concomitant]
     Active Substance: DOCUSATE SODIUM\SENNOSIDES
  22. POTASSIUM [Concomitant]
     Active Substance: POTASSIUM
  23. BUMETANIDE [Concomitant]
     Active Substance: BUMETANIDE

REACTIONS (7)
  - Thrombosis [None]
  - Hepatomegaly [None]
  - Pulmonary thrombosis [None]
  - Antiphospholipid syndrome [None]
  - Fluid retention [None]
  - Oedema [None]
  - Polyuria [None]

NARRATIVE: CASE EVENT DATE: 20240101
